FAERS Safety Report 23909807 (Version 1)
Quarter: 2024Q2

REPORT INFORMATION
  Report Type: Report from Study
  Country: CA (occurrence: CA)
  Receive Date: 20240528
  Receipt Date: 20240528
  Transmission Date: 20240716
  Serious: Yes (Other)
  Sender: FDA-Public Use
  Company Number: CA-BEH-2024172846

PATIENT
  Age: 83 Year
  Sex: Female
  Weight: 82.9 kg

DRUGS (1)
  1. HIZENTRA [Suspect]
     Active Substance: HUMAN IMMUNOGLOBULIN G
     Indication: Secondary immunodeficiency
     Dosage: 5 G, QW
     Route: 065
     Dates: start: 20240506

REACTIONS (3)
  - Arthritis [Unknown]
  - Arthropathy [Unknown]
  - Anxiety [Unknown]
